FAERS Safety Report 7456544-1 (Version None)
Quarter: 2011Q2

REPORT INFORMATION
  Report Type: 
  Country: None (occurrence: None)
  Receive Date: 20110503
  Receipt Date: 20110427
  Transmission Date: 20111010
  Serious: Yes (Hospitalization)
  Sender: FDA-Public Use
  Company Number: US-GILEAD-2011-0037818

PATIENT
  Sex: Female

DRUGS (13)
  1. LOVASTATIN [Concomitant]
  2. PREDNISOLONE [Concomitant]
  3. POTASSIUM CHLORIDE [Concomitant]
  4. XANAX [Concomitant]
  5. CELEXA [Concomitant]
  6. LETAIRIS [Suspect]
     Indication: PULMONARY ARTERIAL HYPERTENSION
     Route: 048
     Dates: start: 20101027
  7. LASIX [Concomitant]
  8. PERCOCET [Concomitant]
  9. VENTOLIN HFA [Concomitant]
  10. PRILOSEC [Concomitant]
  11. DURAGESIC-100 [Concomitant]
  12. REVATIO [Concomitant]
  13. LISINOPRIL [Concomitant]

REACTIONS (3)
  - PNEUMONIA ASPIRATION [None]
  - GASTRITIS [None]
  - VOMITING [None]
